FAERS Safety Report 14046863 (Version 1)
Quarter: 2017Q4

REPORT INFORMATION
  Report Type: Spontaneous
  Country: JP (occurrence: JP)
  Receive Date: 20171005
  Receipt Date: 20171005
  Transmission Date: 20180321
  Serious: Yes (Other)
  Sender: FDA-Public Use
  Company Number: JP-GLAXOSMITHKLINE-JP2017JPN151651

PATIENT
  Age: 7 Decade
  Sex: Male

DRUGS (1)
  1. VALTREX [Suspect]
     Active Substance: VALACYCLOVIR HYDROCHLORIDE
     Dosage: UNK
     Route: 048

REACTIONS (6)
  - Renal impairment [Unknown]
  - Platelet count decreased [Unknown]
  - Anaemia [Unknown]
  - Renal disorder [Unknown]
  - Thrombotic microangiopathy [Unknown]
  - Proteinuria [Unknown]
